FAERS Safety Report 20659373 (Version 1)
Quarter: 2022Q1

REPORT INFORMATION
  Report Type: Spontaneous
  Country: US (occurrence: US)
  Receive Date: 20220331
  Receipt Date: 20220331
  Transmission Date: 20220423
  Serious: Yes (Other)
  Sender: FDA-Public Use
  Company Number: US-PFIZER INC-202200437745

PATIENT
  Sex: Female

DRUGS (2)
  1. WATER [Suspect]
     Active Substance: WATER
     Dosage: 2-6CC TOTAL
     Route: 058
     Dates: start: 20220310
  2. BOTOX [Suspect]
     Active Substance: ONABOTULINUMTOXINA

REACTIONS (3)
  - Swelling face [Recovering/Resolving]
  - Periorbital oedema [Unknown]
  - Pain [Unknown]

NARRATIVE: CASE EVENT DATE: 20220310
